FAERS Safety Report 10172886 (Version 1)
Quarter: 2014Q2

REPORT INFORMATION
  Report Type: Spontaneous
  Country: US (occurrence: None)
  Receive Date: 20140514
  Receipt Date: 20140514
  Transmission Date: 20141212
  Serious: Yes (Disabling)
  Sender: FDA-Public Use
  Company Number: None

PATIENT
  Age: 51 Year
  Sex: Male
  Weight: 102 kg

DRUGS (1)
  1. DULOXETINE [Suspect]
     Dosage: 1 CAP, QD, ORAL
     Route: 048

REACTIONS (1)
  - Deafness unilateral [None]
